FAERS Safety Report 16275642 (Version 3)
Quarter: 2019Q2

REPORT INFORMATION
  Report Type: Spontaneous
  Country: CH (occurrence: CH)
  Receive Date: 20190506
  Receipt Date: 20190516
  Transmission Date: 20190711
  Serious: Yes (Death)
  Sender: FDA-Public Use
  Company Number: FR-SA-2019SA120625

PATIENT
  Age: 73 Year
  Sex: Male
  Weight: 78 kg

DRUGS (1)
  1. MYOZYME [Suspect]
     Active Substance: ALGLUCOSIDASE ALFA
     Indication: GLYCOGEN STORAGE DISEASE TYPE II
     Dosage: 19.23 MG/KG, QOW
     Route: 041
     Dates: start: 20170922, end: 20190403

REACTIONS (1)
  - Disease progression [Fatal]
